FAERS Safety Report 5357724-1 (Version None)
Quarter: 2007Q2

REPORT INFORMATION
  Report Type: 
  Country: None (occurrence: None)
  Receive Date: 20070614
  Receipt Date: 20070612
  Transmission Date: 20071010
  Serious: Yes (Hospitalization)
  Sender: FDA-Public Use
  Company Number: US-ROXANE LABORATORIES, INC-2007-BP-08417RO

PATIENT
  Age: 70 Year
  Sex: Male

DRUGS (8)
  1. CALCIUM CARBONATE [Suspect]
     Indication: DYSPEPSIA
     Route: 048
  2. ALUMINUM HYDROXIDE [Suspect]
     Indication: DYSPEPSIA
     Route: 048
  3. MAGNESIUM HYDROXIDE TAB [Suspect]
     Indication: DYSPEPSIA
     Route: 048
  4. METOPROLOL SUCCINATE [Concomitant]
  5. AMLOPIDINE [Concomitant]
  6. SIMVASTATIN [Concomitant]
  7. ROSIGLITAZONE [Concomitant]
  8. NEPHROVITE [Concomitant]

REACTIONS (4)
  - HYPERCALCAEMIA [None]
  - METABOLIC ACIDOSIS [None]
  - MILK-ALKALI SYNDROME [None]
  - RENAL FAILURE [None]
